FAERS Safety Report 11416632 (Version 3)
Quarter: 2016Q4

REPORT INFORMATION
  Report Type: Spontaneous
  Country: US (occurrence: US)
  Receive Date: 20150825
  Receipt Date: 20161102
  Transmission Date: 20170206
  Serious: Yes (Hospitalization)
  Sender: FDA-Public Use
  Company Number: US-PERRIGO-15US008744

PATIENT
  Age: 46 Year
  Sex: Male
  Weight: 79.37 kg

DRUGS (1)
  1. TOPCARE ANTACID PLUS ANTI GAS [Suspect]
     Active Substance: ALUMINUM HYDROXIDE\DIMETHICONE\MAGNESIUM HYDROXIDE
     Indication: DYSPEPSIA
     Dosage: 10-20 ML, QD
     Route: 048
     Dates: start: 20140526, end: 20140527

REACTIONS (3)
  - Abdominal pain [Recovered/Resolved]
  - Vomiting [Unknown]
  - Nausea [Unknown]

NARRATIVE: CASE EVENT DATE: 201405
